FAERS Safety Report 7686303-6 (Version None)
Quarter: 2011Q3

REPORT INFORMATION
  Report Type: 
  Country: None (occurrence: None)
  Receive Date: 20110816
  Receipt Date: 20110812
  Transmission Date: 20111222
  Serious: Yes (Other)
  Sender: FDA-Public Use
  Company Number: JP-PFIZER INC-2011166483

PATIENT
  Age: 70 Year
  Sex: Female

DRUGS (2)
  1. LYRICA [Suspect]
     Indication: PERIARTHRITIS
     Dosage: 75 MG, 2X/DAY
     Route: 048
     Dates: start: 20110704, end: 20110719
  2. CELECOXIB [Suspect]
     Indication: PERIARTHRITIS
     Dosage: 100 MG, 2X/DAY
     Route: 048
     Dates: start: 20110704, end: 20110719

REACTIONS (5)
  - RASH [None]
  - OEDEMA MOUTH [None]
  - DIZZINESS [None]
  - PHARYNGEAL OEDEMA [None]
  - DYSPNOEA [None]
